FAERS Safety Report 4542413-3 (Version None)
Quarter: 2004Q4

REPORT INFORMATION
  Report Type: 
  Country: None (occurrence: None)
  Receive Date: 20041227
  Receipt Date: 20041206
  Transmission Date: 20050328
  Serious: Yes (Life-Threatening)
  Sender: FDA-Public Use
  Company Number: 04H-163-0282577-00

PATIENT
  Age: 66 Year
  Sex: Male

DRUGS (3)
  1. PRECEDEX [Suspect]
     Indication: ANAESTHESIA
     Dosage: 0.5 MCG/KG/HR, INFUSED FOR 4 1/2 HRS., INTRAVENOUS
     Route: 042
     Dates: start: 20041201, end: 20041201
  2. FENTANYL [Suspect]
     Indication: ANAESTHESIA
     Dosage: INTRAVENOUS
     Route: 042
     Dates: start: 20041201, end: 20041201
  3. VASOPRESSIN INJECTION [Suspect]
     Indication: ANAESTHESIA
     Dosage: INTRAVENOUS
     Route: 042
     Dates: start: 20041201, end: 20041201

REACTIONS (4)
  - BLOOD PRESSURE DECREASED [None]
  - CARDIAC ARREST [None]
  - ELECTROENCEPHALOGRAM ABNORMAL [None]
  - SINUS ARRHYTHMIA [None]
